FAERS Safety Report 25009887 (Version 4)
Quarter: 2025Q1

REPORT INFORMATION
  Report Type: Spontaneous
  Country: US (occurrence: US)
  Receive Date: 20250225
  Receipt Date: 20250306
  Transmission Date: 20250408
  Serious: Yes (Hospitalization, Other)
  Sender: ALEXION PHARMACEUTICALS
  Company Number: US-AstraZeneca-CH-00806964AP

PATIENT
  Age: 73 Year

DRUGS (1)
  1. BUDESONIDE\FORMOTEROL [Suspect]
     Active Substance: BUDESONIDE\FORMOTEROL
     Route: 065

REACTIONS (7)
  - Cataract [Unknown]
  - Asthma [Unknown]
  - Product dose omission issue [Unknown]
  - Device use issue [Unknown]
  - Product contamination [Unknown]
  - Device physical property issue [Unknown]
  - Wrong technique in device usage process [Unknown]
